FAERS Safety Report 16700311 (Version 1)
Quarter: 2019Q3

REPORT INFORMATION
  Report Type: Spontaneous
  Country: US (occurrence: US)
  Receive Date: 20190814
  Receipt Date: 20190814
  Transmission Date: 20191004
  Serious: No
  Sender: FDA-Public Use
  Company Number: US-JNJFOC-20190743314

PATIENT
  Age: 9 Month
  Sex: Female

DRUGS (2)
  1. MOTRIN INFANTS [Suspect]
     Active Substance: IBUPROFEN
     Indication: TEETHING
     Dosage: A COUPLE OF TIMES FOR THIS INSTANCE
     Route: 048
     Dates: start: 20190728, end: 20190728
  2. MOTRIN INFANTS [Suspect]
     Active Substance: IBUPROFEN
     Route: 048
     Dates: start: 20190728, end: 20190728

REACTIONS (3)
  - Psychomotor hyperactivity [Recovered/Resolved]
  - Incorrect dose administered [Unknown]
  - Hostility [Recovered/Resolved]

NARRATIVE: CASE EVENT DATE: 20190728
